FAERS Safety Report 18685541 (Version 2)
Quarter: 2021Q3

REPORT INFORMATION
  Report Type: Spontaneous
  Country: US (occurrence: US)
  Receive Date: 20201230
  Receipt Date: 20210914
  Transmission Date: 20211014
  Serious: Yes (Hospitalization, Other)
  Sender: FDA-Public Use
  Company Number: US-PURDUE-USA-2020-0160272

PATIENT
  Sex: Male

DRUGS (3)
  1. PERCOCET                           /00446701/ [Suspect]
     Active Substance: ACETAMINOPHEN\OXYCODONE HYDROCHLORIDE\OXYCODONE TEREPHTHALATE
     Indication: PRODUCT USED FOR UNKNOWN INDICATION
     Dosage: 5 MG, UNKNOWN
     Route: 065
  2. OXYCODONE HYDROCHLORIDE (SIMILAR TO NDA 22?272) [Suspect]
     Active Substance: OXYCODONE HYDROCHLORIDE
     Indication: PRODUCT USED FOR UNKNOWN INDICATION
     Dosage: UNKNOWN
     Route: 048
  3. PERCOCET                           /00446701/ [Suspect]
     Active Substance: ACETAMINOPHEN\OXYCODONE HYDROCHLORIDE\OXYCODONE TEREPHTHALATE
     Dosage: 10 MG, UNKNOWN
     Route: 065

REACTIONS (17)
  - Muscle atrophy [Unknown]
  - Gait disturbance [Unknown]
  - Drug dependence [Unknown]
  - Pain [Unknown]
  - Emotional distress [Unknown]
  - Heart rate increased [Unknown]
  - Malnutrition [Unknown]
  - Hypertension [Unknown]
  - Pyrexia [Unknown]
  - Fall [Unknown]
  - Muscle rupture [Unknown]
  - Jaundice [Unknown]
  - Musculoskeletal stiffness [Unknown]
  - Blood creatine decreased [Unknown]
  - Near death experience [Unknown]
  - Decreased appetite [Unknown]
  - Generalised tonic-clonic seizure [Unknown]
